FAERS Safety Report 4430553-9 (Version None)
Quarter: 2004Q3

REPORT INFORMATION
  Report Type: 
  Country: None (occurrence: None)
  Receive Date: 20040818
  Receipt Date: 20040803
  Transmission Date: 20050211
  Serious: Yes (Life-Threatening)
  Sender: FDA-Public Use
  Company Number: 208123

PATIENT
  Age: 52 Year
  Sex: Female
  Weight: 41 kg

DRUGS (7)
  1. HERCEPTIN [Suspect]
     Indication: BREAST CANCER METASTATIC
     Dosage: 160 MG, INTRAVENOUS
     Route: 042
     Dates: start: 20040721, end: 20040721
  2. AREDIA [Concomitant]
  3. LOXONIN (LOXOPROFEN SODIUM) [Concomitant]
  4. SELBEX (TEPRENONE) [Concomitant]
  5. DEPAS (ETIZOLAM) [Concomitant]
  6. PRIMERPAN (METOCLOPRAMIDE HYDROCHLORIDE) [Concomitant]
  7. URSO [Concomitant]

REACTIONS (9)
  - ALANINE AMINOTRANSFERASE INCREASED [None]
  - ASPARTATE AMINOTRANSFERASE INCREASED [None]
  - BLOOD ALKALINE PHOSPHATASE INCREASED [None]
  - BLOOD LACTATE DEHYDROGENASE INCREASED [None]
  - BLOOD PRESSURE DECREASED [None]
  - BLOOD UREA INCREASED [None]
  - DISSEMINATED INTRAVASCULAR COAGULATION [None]
  - HAEMOGLOBIN DECREASED [None]
  - HYPOAESTHESIA [None]
